FAERS Safety Report 16821844 (Version 1)
Quarter: 2019Q3

REPORT INFORMATION
  Report Type: Spontaneous
  Country: FR (occurrence: FR)
  Receive Date: 20190918
  Receipt Date: 20190918
  Transmission Date: 20191005
  Serious: Yes (Death)
  Sender: FDA-Public Use
  Company Number: FR-PFIZER INC-2019397050

PATIENT
  Age: 62 Year
  Sex: Female
  Weight: 43 kg

DRUGS (2)
  1. AMLOR [Suspect]
     Active Substance: AMLODIPINE BESYLATE
     Dosage: 5 MG, 1X/DAY
     Route: 048
     Dates: start: 20181025, end: 20181109
  2. IRESSA [Suspect]
     Active Substance: GEFITINIB
     Indication: ADENOCARCINOMA
     Dosage: 125 MG, 1X/DAY
     Route: 048
     Dates: start: 20181025, end: 20181109

REACTIONS (2)
  - Rash erythematous [Recovered/Resolved]
  - Death [Fatal]

NARRATIVE: CASE EVENT DATE: 20181107
